FAERS Safety Report 26201635 (Version 1)
Quarter: 2025Q4

REPORT INFORMATION
  Report Type: Spontaneous
  Country: US (occurrence: US)
  Receive Date: 20251226
  Receipt Date: 20251226
  Transmission Date: 20260118
  Serious: No
  Sender: RIGEL PHARMACEUTICALS
  Company Number: US-RIGEL Pharmaceuticals INC-20251000155

PATIENT
  Age: 67 Year
  Sex: Female
  Weight: 87.997 kg

DRUGS (2)
  1. REZLIDHIA [Suspect]
     Active Substance: OLUTASIDENIB
     Indication: Acute myeloid leukaemia
     Dosage: 150 MG , BID
     Route: 048
     Dates: start: 20251008
  2. TIBSOVO [Concomitant]
     Active Substance: IVOSIDENIB
     Indication: Product used for unknown indication
     Dosage: UNK

REACTIONS (2)
  - Migraine [Unknown]
  - Dyspnoea [Recovering/Resolving]

NARRATIVE: CASE EVENT DATE: 20251001
